FAERS Safety Report 8798913 (Version 1)
Quarter: 2012Q4

REPORT INFORMATION
  Report Type: 
  Country: US (occurrence: US)
  Receive Date: 20120920
  Receipt Date: 20120920
  Transmission Date: 20130627
  Serious: No
  Sender: FDA-Public Use
  Company Number: US-PFIZER INC-2012232258

PATIENT
  Age: 51 Year
  Sex: Female
  Weight: 90.7 kg

DRUGS (11)
  1. ADVIL [Suspect]
     Indication: BACK DISORDER
     Dosage: 200 mg, once a day
     Route: 048
     Dates: start: 201207, end: 20120916
  2. NORVASC [Concomitant]
     Dosage: 10 mg, UNK
  3. BRIMONIDINE [Concomitant]
     Dosage: UNK
  4. CITALOPRAM [Concomitant]
     Dosage: 20 mg, UNK
  5. FLEXERIL [Concomitant]
     Dosage: 10 mg, UNK
  6. DOCUSATE [Concomitant]
     Dosage: 100 mg, UNK
  7. ERGOCALCIFEROL [Concomitant]
     Dosage: 5000 IU, UNK
  8. LEVOTHYROXINE [Concomitant]
     Dosage: 112 ug, UNK
  9. LISINOPRIL [Concomitant]
     Dosage: UNK
  10. SIMVASTATIN [Concomitant]
     Dosage: 40 mg, UNK
  11. SPIRONOLACTONE [Concomitant]
     Dosage: 25 mg, UNK

REACTIONS (1)
  - Constipation [Unknown]
